FAERS Safety Report 12147044 (Version 3)
Quarter: 2018Q1

REPORT INFORMATION
  Report Type: Report from Study
  Country: US (occurrence: US)
  Receive Date: 20160304
  Receipt Date: 20180323
  Transmission Date: 20180508
  Serious: Yes (Hospitalization)
  Sender: FDA-Public Use
  Company Number: US-ACTELION-A-US2016-132160

PATIENT
  Age: 76 Year
  Sex: Female

DRUGS (3)
  1. SILDENAFIL. [Concomitant]
     Active Substance: SILDENAFIL
  2. ORENITRAM [Concomitant]
     Active Substance: TREPROSTINIL
     Route: 065
  3. TRACLEER [Suspect]
     Active Substance: BOSENTAN
     Indication: PULMONARY ARTERIAL HYPERTENSION
     Dosage: 125 MG, BID
     Route: 048

REACTIONS (6)
  - Gastric ulcer [Unknown]
  - Haemoglobin decreased [Unknown]
  - Gastric ulcer haemorrhage [Unknown]
  - Drug intolerance [Unknown]
  - Hepatic haemorrhage [Unknown]
  - Thrombosis [Unknown]
